FAERS Safety Report 5670497-8 (Version None)
Quarter: 2008Q1

REPORT INFORMATION
  Report Type: 
  Country: None (occurrence: None)
  Receive Date: 20080318
  Receipt Date: 20080307
  Transmission Date: 20080703
  Serious: Yes (Life-Threatening, Hospitalization)
  Sender: FDA-Public Use
  Company Number: JP-NOVOPROD-272687

PATIENT
  Sex: Female
  Weight: 52 kg

DRUGS (5)
  1. NOVORAPID CHU FLEXPEN [Suspect]
     Indication: TYPE 1 DIABETES MELLITUS
     Dosage: 16 IU, QD
     Route: 058
     Dates: end: 20080224
  2. NOVORAPID CHU FLEXPEN [Suspect]
     Dosage: 16 IU, QD
     Route: 058
     Dates: start: 20080226
  3. LANTUS [Concomitant]
     Indication: TYPE 1 DIABETES MELLITUS
     Dosage: 12 IU, QD
     Route: 058
     Dates: start: 19991101, end: 20080224
  4. LANTUS [Concomitant]
     Dosage: 12 IU, QD
     Route: 058
     Dates: start: 20080226
  5. MERCAZOLE [Concomitant]
     Indication: BASEDOW'S DISEASE
     Dosage: 5 MG, QD
     Route: 048

REACTIONS (2)
  - HYPOGLYCAEMIC UNCONSCIOUSNESS [None]
  - SUICIDE ATTEMPT [None]
